FAERS Safety Report 25079084 (Version 1)
Quarter: 2025Q1

REPORT INFORMATION
  Report Type: Spontaneous
  Country: US (occurrence: US)
  Receive Date: 20250314
  Receipt Date: 20250314
  Transmission Date: 20250408
  Serious: No
  Sender: ITALFARMACO SPA
  Company Number: US-ITALFARMACO SPA-2172912

PATIENT
  Age: 15 Year
  Sex: Male

DRUGS (9)
  1. DUVYZAT [Suspect]
     Active Substance: GIVINOSTAT
  2. TESTOSTERONE [Concomitant]
     Active Substance: TESTOSTERONE
  3. IMODIUM [Concomitant]
     Active Substance: LOPERAMIDE HYDROCHLORIDE
  4. VITAMIN D3 [Concomitant]
     Active Substance: CHOLECALCIFEROL
  5. VAMOROLONE [Concomitant]
     Active Substance: VAMOROLONE
  6. CARVEDILOL [Concomitant]
     Active Substance: CARVEDILOL
  7. ALDACTONE [Concomitant]
     Active Substance: SPIRONOLACTONE
  8. LISINOPRIL [Concomitant]
     Active Substance: LISINOPRIL
  9. PRILOSEC [Concomitant]
     Active Substance: OMEPRAZOLE MAGNESIUM

REACTIONS (3)
  - Abdominal pain [Unknown]
  - Intentional product misuse [Unknown]
  - Diarrhoea [Not Recovered/Not Resolved]
